FAERS Safety Report 4854242-1 (Version None)
Quarter: 2005Q4

REPORT INFORMATION
  Report Type: 
  Country: None (occurrence: None)
  Receive Date: 20051207
  Receipt Date: 20051207
  Transmission Date: 20060501
  Serious: Yes (Life-Threatening, Hospitalization, Disabling)
  Sender: FDA-Public Use
  Company Number: None

PATIENT
  Sex: Male
  Weight: 63.9572 kg

DRUGS (1)
  1. CYPHER STENT  3.0 MM X 23 MM  CORDIS -J+J- [Suspect]
     Dates: start: 20030717

REACTIONS (3)
  - ACUTE MYOCARDIAL INFARCTION [None]
  - SURGICAL PROCEDURE REPEATED [None]
  - THROMBOSIS IN DEVICE [None]
